FAERS Safety Report 9475593 (Version 1)
Quarter: 2013Q3

REPORT INFORMATION
  Report Type: Spontaneous
  Country: US (occurrence: None)
  Receive Date: 20130822
  Receipt Date: 20130822
  Transmission Date: 20140515
  Serious: No
  Sender: FDA-Public Use
  Company Number: None

PATIENT
  Age: 62 Year
  Sex: Female

DRUGS (2)
  1. SIMPONI [Suspect]
     Dosage: INJECT 1 PEN UNDER THE SKIN
     Dates: start: 20121107, end: 20130530
  2. METHOTREXATE [Concomitant]

REACTIONS (1)
  - Staphylococcal infection [None]
